FAERS Safety Report 4773140-5 (Version None)
Quarter: 2005Q3

REPORT INFORMATION
  Report Type: 
  Country: None (occurrence: None)
  Receive Date: 20050919
  Receipt Date: 20050906
  Transmission Date: 20060218
  Serious: Yes (Other)
  Sender: FDA-Public Use
  Company Number: 2005-DE-03577GD

PATIENT
  Age: 53 Year
  Sex: Male
  Weight: 80 kg

DRUGS (6)
  1. MORPHINE [Suspect]
     Indication: POSTOPERATIVE ANALGESIA
     Dosage: 13 ML OF A MIXTURE OF 3 MG MORPHINE PLUS 100 MG ROCURONIUM, INJECTED IN 3 DIVIDED DOSES (SEE TEXT)
     Route: 008
  2. ROCURONIUM (ROCURONIUM) [Suspect]
     Dosage: 13 ML OF A MIXTURE OF 100 MG ROCURONIUM PLUS 3 MG MORPHINE, INJECTED IN 3 DIVIDED DOSES (SEE TEXT)
     Route: 008
  3. MIDAZOLAM HCL [Suspect]
  4. ATROPINE SULFATE [Concomitant]
  5. PROPOFOL [Concomitant]
  6. SEVOFLURANE [Concomitant]

REACTIONS (8)
  - BURNING SENSATION [None]
  - DRUG ADMINISTRATION ERROR [None]
  - DYSPNOEA [None]
  - HYPOVENTILATION [None]
  - INCORRECT ROUTE OF DRUG ADMINISTRATION [None]
  - MIOSIS [None]
  - PAIN [None]
  - SPEECH DISORDER [None]
